FAERS Safety Report 9001542 (Version 1)
Quarter: 2013Q1

REPORT INFORMATION
  Report Type: Spontaneous
  Country: US (occurrence: US)
  Receive Date: 20130107
  Receipt Date: 20130107
  Transmission Date: 20140127
  Serious: Yes (Death)
  Sender: FDA-Public Use
  Company Number: US-ASTRAZENECA-2013SE00411

PATIENT
  Age: 36 Year
  Sex: Male

DRUGS (7)
  1. MORPHINE [Suspect]
     Route: 048
  2. QUETIAPINE [Suspect]
     Route: 048
  3. TRAMADOL [Suspect]
     Route: 048
  4. ALPRAZOLAM [Suspect]
     Route: 048
  5. HYDROMORPHONE [Suspect]
     Route: 048
  6. SKELETAL MUSCLE RELAXANT [Suspect]
     Route: 048
  7. RISPERIDONE [Suspect]
     Route: 048

REACTIONS (1)
  - Toxicity to various agents [Fatal]
